FAERS Safety Report 19953527 (Version 2)
Quarter: 2021Q4

REPORT INFORMATION
  Report Type: Report from Study
  Country: US (occurrence: US)
  Receive Date: 20211014
  Receipt Date: 20211102
  Transmission Date: 20220303
  Serious: Yes (Death, Other)
  Sender: FDA-Public Use
  Company Number: US-BAYER-2021A230102

PATIENT
  Age: 77 Year
  Sex: Female

DRUGS (2)
  1. ADEMPAS [Suspect]
     Active Substance: RIOCIGUAT
     Indication: Pulmonary arterial hypertension
     Dosage: UNK
  2. ADEMPAS [Suspect]
     Active Substance: RIOCIGUAT
     Indication: Pulmonary arterial hypertension
     Dosage: 2.5 MG, TID
     Route: 048
     Dates: start: 20200921, end: 20210809

REACTIONS (5)
  - Death [Fatal]
  - Cellulitis [None]
  - Dyspnoea [Not Recovered/Not Resolved]
  - Hypervolaemia [None]
  - N-terminal prohormone brain natriuretic peptide increased [None]

NARRATIVE: CASE EVENT DATE: 20210809
